FAERS Safety Report 13151309 (Version 1)
Quarter: 2017Q1

REPORT INFORMATION
  Report Type: Not Available
  Country: FR (occurrence: FR)
  Receive Date: 20170125
  Receipt Date: 20170125
  Transmission Date: 20170428
  Serious: Yes (Death)
  Sender: FDA-Public Use
  Company Number: FR-SYNTHON BV-NL01PV17_42890

PATIENT
  Age: 94 Year
  Sex: Female

DRUGS (10)
  1. KARDEGIC [Suspect]
     Active Substance: ASPIRIN LYSINE
     Dosage: 75 MG (1 DOSAGE FORM, ORAL POWDER), DAILY
     Route: 048
  2. LEVOTHYROX [Suspect]
     Active Substance: LEVOTHYROXINE
     Dosage: 1 DF, DAILY
     Route: 048
  3. NORMACOL /06843301/ [Suspect]
     Active Substance: FRANGULA ALNUS BARK\KARAYA GUM
     Dosage: 1 DF (RECTAL SOLUTION), DAILY
     Route: 054
  4. TAMSULOSIN [Suspect]
     Active Substance: TAMSULOSIN
     Dosage: 0.4 MG, DAILY
     Route: 048
  5. LEVOTHYROX [Suspect]
     Active Substance: LEVOTHYROXINE
     Dosage: 1 DF, DAILY
     Route: 048
  6. SERESTA [Suspect]
     Active Substance: OXAZEPAM
     Dosage: 3 TIMES A DAY
     Route: 048
  7. ACEBUTOLOL HYDROCHLORIDE. [Suspect]
     Active Substance: ACEBUTOLOL HYDROCHLORIDE
     Dosage: 50 MG, BID
     Route: 048
  8. VISIPAQUE [Suspect]
     Active Substance: IODIXANOL
     Indication: COMPUTERISED TOMOGRAM
     Dosage: UNK
     Route: 042
     Dates: start: 20150429, end: 20150429
  9. ZYPREXA [Suspect]
     Active Substance: OLANZAPINE
     Dosage: 10 MG (DISPERSIBLE TABLET), AT BEDTIME
     Route: 048
  10. LOXEN                              /00639802/ [Suspect]
     Active Substance: NICARDIPINE
     Dosage: 50 MG, DAILY
     Route: 048

REACTIONS (3)
  - Dyspnoea [Fatal]
  - Acute pulmonary oedema [None]
  - Somnolence [None]

NARRATIVE: CASE EVENT DATE: 20150429
